FAERS Safety Report 8027233-X (Version None)
Quarter: 2012Q1

REPORT INFORMATION
  Report Type: 
  Country: None (occurrence: None)
  Receive Date: 20120105
  Receipt Date: 20120105
  Transmission Date: 20120608
  Serious: Yes (Life-Threatening)
  Sender: FDA-Public Use
  Company Number: None

PATIENT
  Age: 61 Year
  Sex: Male
  Weight: 82.5 kg

DRUGS (1)
  1. AMPICILLIN AND SULBACTAM [Suspect]
     Indication: SURGERY
     Dosage: 1.5 GM QID IV
     Route: 042
     Dates: start: 20110909, end: 20110909

REACTIONS (1)
  - ANAPHYLACTIC REACTION [None]
